FAERS Safety Report 14007684 (Version 1)
Quarter: 2017Q3

REPORT INFORMATION
  Report Type: Spontaneous
  Country: RU (occurrence: RU)
  Receive Date: 20170925
  Receipt Date: 20170925
  Transmission Date: 20171128
  Serious: Yes (Other)
  Sender: FDA-Public Use
  Company Number: RU-ACCORD-058802

PATIENT
  Sex: Female

DRUGS (2)
  1. METHOTREXATE. [Suspect]
     Active Substance: METHOTREXATE
     Indication: SARCOIDOSIS
     Dates: start: 2011
  2. TOCOPHEROL [Concomitant]
     Active Substance: TOCOPHEROL
     Indication: SARCOIDOSIS

REACTIONS (3)
  - Nausea [Recovering/Resolving]
  - Hepatic enzyme increased [Recovering/Resolving]
  - Leukocytosis [Recovering/Resolving]

NARRATIVE: CASE EVENT DATE: 2011
